FAERS Safety Report 10538287 (Version 2)
Quarter: 2014Q4

REPORT INFORMATION
  Report Type: Spontaneous
  Country: TR (occurrence: TR)
  Receive Date: 20141023
  Receipt Date: 20141023
  Transmission Date: 20150529
  Serious: Yes (Hospitalization)
  Sender: FDA-Public Use
  Company Number: TR-NOVOPROD-399088

PATIENT
  Age: 41 Year
  Sex: Female
  Weight: 75.5 kg

DRUGS (2)
  1. LEVEMIR [Suspect]
     Active Substance: INSULIN DETEMIR
     Indication: TYPE 2 DIABETES MELLITUS
     Dosage: 10 U, QD
     Route: 058
     Dates: start: 20140121, end: 20140718
  2. NOVORAPID [Suspect]
     Active Substance: INSULIN ASPART
     Indication: TYPE 2 DIABETES MELLITUS
     Dosage: 30 U, QD
     Route: 058
     Dates: start: 20140121, end: 20140718

REACTIONS (3)
  - Premature delivery [Recovered/Resolved]
  - Exposure during pregnancy [Recovered/Resolved]
  - Preterm premature rupture of membranes [Recovered/Resolved]

NARRATIVE: CASE EVENT DATE: 20140121
